FAERS Safety Report 22320582 (Version 1)
Quarter: 2023Q2

REPORT INFORMATION
  Report Type: Spontaneous
  Country: US (occurrence: US)
  Receive Date: 20230515
  Receipt Date: 20230515
  Transmission Date: 20230722
  Serious: No
  Sender: FDA-Public Use
  Company Number: US-TEVA-2023-US-2882186

PATIENT
  Age: 44 Year
  Sex: Female
  Weight: 67.59 kg

DRUGS (2)
  1. AJOVY [Suspect]
     Active Substance: FREMANEZUMAB-VFRM
     Indication: Migraine
     Dosage: 1 INJECTION MONTHLY
     Route: 065
  2. AJOVY [Suspect]
     Active Substance: FREMANEZUMAB-VFRM

REACTIONS (7)
  - Adverse reaction [Recovered/Resolved]
  - Injection site rash [Unknown]
  - Injection site hypersensitivity [Unknown]
  - Pruritus [Unknown]
  - Urticaria [Unknown]
  - Lower limb fracture [Unknown]
  - Injection site warmth [Unknown]

NARRATIVE: CASE EVENT DATE: 20230201
